FAERS Safety Report 19426586 (Version 2)
Quarter: 2021Q3

REPORT INFORMATION
  Report Type: Spontaneous
  Country: PL (occurrence: PL)
  Receive Date: 20210616
  Receipt Date: 20210729
  Transmission Date: 20211014
  Serious: Yes (Hospitalization, Other)
  Sender: FDA-Public Use
  Company Number: PL-PFIZER INC-2021661872

PATIENT
  Age: 79 Year
  Sex: Male
  Weight: 103.3 kg

DRUGS (15)
  1. METFORMIN HYDROCHLORIDE. [Suspect]
     Active Substance: METFORMIN HYDROCHLORIDE
     Dosage: 500 MG, 3X/DAY
     Route: 065
  2. GLICLAZIDE [Suspect]
     Active Substance: GLICLAZIDE
     Dosage: 60 MG, 1X/DAY, 1?0?0
     Route: 065
  3. PERINDOPRIL [Suspect]
     Active Substance: PERINDOPRIL
     Dosage: 10 MG, 1X/DAY, 0?0?1
     Route: 065
  4. FINASTERIDE. [Suspect]
     Active Substance: FINASTERIDE
     Dosage: 5 MG, 1X/DAY, 1?0?0
     Route: 065
  5. TORASEMIDE [Suspect]
     Active Substance: TORSEMIDE
     Dosage: 20 MG, 1X/DAY, 1?0?0
     Route: 065
  6. MILURIT [Suspect]
     Active Substance: ALLOPURINOL
     Dosage: 300 MG, 1X/DAY, 1?0?0
     Route: 065
  7. EPLERENONE. [Suspect]
     Active Substance: EPLERENONE
     Dosage: 25 MG, 1X/DAY, 1?0?0
  8. LERCANIDIPINE [Suspect]
     Active Substance: LERCANIDIPINE
     Dosage: 20 MG, 1X/DAY, 1?0?0
     Route: 065
  9. ATORVASTATIN CALCIUM. [Suspect]
     Active Substance: ATORVASTATIN CALCIUM
     Dosage: 20 MG, 1X/DAY, 0?0?1
  10. FORMOTEROL [Suspect]
     Active Substance: FORMOTEROL
     Dosage: 24 UG DAILY (12 UG, TWICE A DAY (1 INHALATION))
     Route: 055
  11. TRIMETAZIDINE HYDROCHLORIDE [Suspect]
     Active Substance: TRIMETAZIDINE DIHYDROCHLORIDE
     Dosage: 20 MG, 2X/DAY, 1?0?1
     Route: 065
  12. ACENOCUMAROL [Suspect]
     Active Substance: ACENOCOUMAROL
     Dosage: 3 MG, 1X/DAY
     Route: 065
  13. ALLOPURINOL. [Suspect]
     Active Substance: ALLOPURINOL
     Dosage: 300 MG, 1X/DAY
  14. TAMSULOSIN HYDROCHLORIDE. [Suspect]
     Active Substance: TAMSULOSIN HYDROCHLORIDE
     Dosage: 0.4 MG, 1X/DAY, 1?0?0
     Route: 065
  15. BISOPROLOL FUMARATE. [Suspect]
     Active Substance: BISOPROLOL FUMARATE
     Dosage: 5 MG, 1X/DAY, 1?0?0

REACTIONS (16)
  - Rales [Unknown]
  - Splenomegaly [Unknown]
  - Oedema peripheral [Unknown]
  - Atrial enlargement [Unknown]
  - Cardiac failure chronic [Unknown]
  - Pleural effusion [Unknown]
  - Heart rate irregular [Unknown]
  - Coronary artery stenosis [Unknown]
  - Dyspnoea at rest [Unknown]
  - Ventricular enlargement [Unknown]
  - Renal cyst [Unknown]
  - Hepatic vein dilatation [Unknown]
  - Liver palpable [Unknown]
  - Breath sounds abnormal [Unknown]
  - Inferior vena cava dilatation [Unknown]
  - Ejection fraction decreased [Unknown]
